FAERS Safety Report 8913368 (Version 1)
Quarter: 2012Q4

REPORT INFORMATION
  Report Type: Spontaneous
  Country: US (occurrence: None)
  Receive Date: 20121114
  Receipt Date: 20121114
  Transmission Date: 20130627
  Serious: Yes (Life-Threatening, Hospitalization, Other)
  Sender: FDA-Public Use
  Company Number: 1472547

PATIENT
  Age: 6 Year
  Sex: Female

DRUGS (5)
  1. METHOTREXATE [Suspect]
     Indication: ACUTE LYMPHOCYTIC LEUKEMIA
     Dates: start: 20120814, end: 20120819
  2. DASATINIB [Suspect]
     Indication: ACUTE LYMPHOCYTIC LEUKEMIA
     Dosage: 55 milligram 1 day, unknown, Oral
     Route: 048
     Dates: start: 20120524
  3. ETOPOSIDE [Suspect]
     Indication: ACUTE LYMPHOCYTIC LEUKEMIA
     Dates: start: 20121012, end: 20121013
  4. ARA-C [Suspect]
     Indication: ACUTE LYMPHOCYTIC LEUKEMIA
     Dates: start: 20121009, end: 20121012
  5. INTERFERON ALFA [Suspect]
     Indication: ACUTE LYMPHOCYTIC LEUKEMIA
     Dates: start: 20121015, end: 20121015

REACTIONS (7)
  - Febrile neutropenia [None]
  - Ileus [None]
  - Mucosal inflammation [None]
  - Pneumonia [None]
  - Rash [None]
  - Thrombocytopenia [None]
  - Varicella [None]
